FAERS Safety Report 13145063 (Version 2)
Quarter: 2017Q1

REPORT INFORMATION
  Report Type: Spontaneous
  Country: SI (occurrence: SI)
  Receive Date: 20170124
  Receipt Date: 20170224
  Transmission Date: 20170428
  Serious: Yes (Other)
  Sender: FDA-Public Use
  Company Number: PHHY2017SI008377

PATIENT
  Age: 73 Year
  Sex: Male
  Weight: 66 kg

DRUGS (3)
  1. REVOLADE [Suspect]
     Active Substance: ELTROMBOPAG
     Indication: REFRACTORY CYTOPENIA WITH MULTILINEAGE DYSPLASIA
     Dosage: 50 MG, QD
     Route: 048
     Dates: start: 201608, end: 20170109
  2. DEXAMETHASONE. [Concomitant]
     Active Substance: DEXAMETHASONE
     Indication: PRODUCT USED FOR UNKNOWN INDICATION
     Dosage: 40 MG, UNK (FOR 4 DAYS)
     Route: 042
  3. REVOLADE [Suspect]
     Active Substance: ELTROMBOPAG
     Indication: THROMBOCYTOPENIA

REACTIONS (12)
  - Bone pain [Unknown]
  - Fatigue [Unknown]
  - White blood cell count increased [Unknown]
  - Refractory anaemia with an excess of blasts [Unknown]
  - Product use issue [Unknown]
  - Haemorrhage [Unknown]
  - Blast cell count increased [Recovering/Resolving]
  - Red blood cell nucleated morphology present [Unknown]
  - Contusion [Unknown]
  - Blast cells present [Unknown]
  - Thrombocytopenia [Unknown]
  - Pain in extremity [Recovered/Resolved]

NARRATIVE: CASE EVENT DATE: 201608
